FAERS Safety Report 6926622-1 (Version None)
Quarter: 2010Q3

REPORT INFORMATION
  Report Type: 
  Country: None (occurrence: None)
  Receive Date: 20100816
  Receipt Date: 20100524
  Transmission Date: 20110219
  Serious: No
  Sender: FDA-Public Use
  Company Number: US-ABBOTT-10P-163-0646639-00

PATIENT
  Weight: 80.812 kg

DRUGS (1)
  1. SIMCOR [Suspect]
     Indication: BLOOD CHOLESTEROL INCREASED
     Dates: start: 20090701

REACTIONS (3)
  - BURNING SENSATION [None]
  - FLUSHING [None]
  - PARAESTHESIA [None]
